FAERS Safety Report 17933253 (Version 2)
Quarter: 2021Q2

REPORT INFORMATION
  Report Type: Spontaneous
  Country: US (occurrence: US)
  Receive Date: 20200623
  Receipt Date: 20210629
  Transmission Date: 20210717
  Serious: Yes (Hospitalization)
  Sender: FDA-Public Use
  Company Number: US-TEVA-2020-US-1790208

PATIENT
  Age: 71 Year
  Sex: Female

DRUGS (1)
  1. OLANZAPINE. [Suspect]
     Active Substance: OLANZAPINE
     Indication: BEHAVIOURAL THERAPY
     Dosage: 5 MILLIGRAM DAILY; RECEIVING FROM 2 YEARS
     Route: 065

REACTIONS (2)
  - Dystonia [Recovered/Resolved]
  - Delirium [Recovered/Resolved]
